FAERS Safety Report 7671239-7 (Version None)
Quarter: 2011Q3

REPORT INFORMATION
  Report Type: 
  Country: None (occurrence: None)
  Receive Date: 20110809
  Receipt Date: 20110726
  Transmission Date: 20111222
  Serious: Yes (Other)
  Sender: FDA-Public Use
  Company Number: US-ELI_LILLY_AND_COMPANY-US201103007651

PATIENT
  Sex: Female

DRUGS (5)
  1. DORZOLAMIDE [Concomitant]
  2. ARTIFICIAL TEARS [Concomitant]
  3. FORTEO [Suspect]
     Dosage: 20 UG, QD
  4. FORTEO [Suspect]
     Indication: OSTEOPOROSIS
     Dosage: 20 UG, QD
     Route: 065
     Dates: start: 20110223
  5. FORTEO [Suspect]
     Dosage: 20 UG, QD

REACTIONS (10)
  - ASTHENIA [None]
  - ARTHRALGIA [None]
  - FATIGUE [None]
  - INJECTION SITE HAEMATOMA [None]
  - EATING DISORDER [None]
  - EYE PAIN [None]
  - ABDOMINAL DISCOMFORT [None]
  - DYSURIA [None]
  - PAIN [None]
  - CATARACT OPERATION [None]
